FAERS Safety Report 9554452 (Version 1)
Quarter: 2013Q3

REPORT INFORMATION
  Report Type: Spontaneous
  Country: DK (occurrence: FR)
  Receive Date: 20130925
  Receipt Date: 20130925
  Transmission Date: 20140515
  Serious: Yes (Congenital Anomaly)
  Sender: FDA-Public Use
  Company Number: FR-FRI-1000049146

PATIENT
  Sex: 0

DRUGS (1)
  1. ESCITALOPRAM [Suspect]
     Route: 064

REACTIONS (2)
  - Congenital umbilical hernia [Unknown]
  - Exposure during pregnancy [Unknown]
